FAERS Safety Report 8993555 (Version 1)
Quarter: 2013Q1

REPORT INFORMATION
  Report Type: Spontaneous
  Country: GB (occurrence: GB)
  Receive Date: 20130102
  Receipt Date: 20130102
  Transmission Date: 20140127
  Serious: Yes (Death, Other)
  Sender: FDA-Public Use
  Company Number: PHHY2012GB121312

PATIENT
  Age: 29 Year
  Sex: Male

DRUGS (11)
  1. DIAZEPAM [Suspect]
  2. DIHYDROCODEINE [Suspect]
  3. ZOMORPH [Suspect]
     Indication: PAIN
     Dosage: 20 MG, BID
     Dates: start: 20090420
  4. PHENAZEPAM [Suspect]
  5. GABAPENTIN [Concomitant]
     Indication: NEURALGIA
     Dosage: 300 MG, UNK
  6. AMITRIPTYLINE [Concomitant]
     Dosage: 25 MG, AT NIGHT
  7. CITALOPRAM [Concomitant]
     Dosage: 40 MG, QD
  8. CHLORPHENIRAMINE [Concomitant]
  9. PARACETAMOL [Concomitant]
  10. PROPRANOLOL [Concomitant]
     Dosage: 10 MG, TID
  11. FERROUS SULPHATE [Concomitant]

REACTIONS (6)
  - Toxicity to various agents [Fatal]
  - Pulmonary congestion [Fatal]
  - Adhesion [Fatal]
  - Circulatory collapse [Unknown]
  - Depressed level of consciousness [Unknown]
  - Overdose [None]
